FAERS Safety Report 9353114 (Version 1)
Quarter: 2013Q2

REPORT INFORMATION
  Report Type: Spontaneous
  Country: JP (occurrence: JP)
  Receive Date: 20130618
  Receipt Date: 20130618
  Transmission Date: 20140414
  Serious: Yes (Other)
  Sender: FDA-Public Use
  Company Number: JP-ROCHE-1237461

PATIENT
  Age: 68 Year
  Sex: Male

DRUGS (1)
  1. RANIBIZUMAB [Suspect]
     Indication: POLYPOIDAL CHOROIDAL VASCULOPATHY
     Dosage: 0.5/0.05MG/ML
     Route: 050

REACTIONS (2)
  - Polypoidal choroidal vasculopathy [Unknown]
  - Disease recurrence [Unknown]
